FAERS Safety Report 9596149 (Version 1)
Quarter: 2013Q4

REPORT INFORMATION
  Report Type: Spontaneous
  Country: SE (occurrence: SE)
  Receive Date: 20131004
  Receipt Date: 20131004
  Transmission Date: 20140711
  Serious: Yes (Hospitalization)
  Sender: FDA-Public Use
  Company Number: SE-ASTRAZENECA-2013SE71881

PATIENT
  Age: 84 Year
  Sex: Female

DRUGS (12)
  1. CANDESARTAN [Suspect]
     Route: 048
  2. SELOKEN ZOC [Suspect]
     Route: 048
  3. KALEROID (POTASSIUM CHLORIDE) [Suspect]
  4. FURIX [Suspect]
  5. OXYNORM [Concomitant]
  6. ENALAPRIL [Concomitant]
  7. LEVAXIN [Concomitant]
  8. ALVEDON [Concomitant]
  9. BEHEPAN [Concomitant]
     Dosage: 1 MG/ML
  10. IMDUR [Concomitant]
     Route: 048
  11. TROMBYL [Concomitant]
  12. GLYTRIN [Concomitant]
     Route: 060

REACTIONS (4)
  - Fatigue [Recovering/Resolving]
  - Pain in extremity [Recovering/Resolving]
  - Hallucination, auditory [Unknown]
  - Confusional state [Unknown]
